FAERS Safety Report 9536100 (Version 1)
Quarter: 2013Q3

REPORT INFORMATION
  Report Type: Spontaneous
  Country: US (occurrence: None)
  Receive Date: 20130917
  Receipt Date: 20130917
  Transmission Date: 20140515
  Serious: Yes (Other)
  Sender: FDA-Public Use
  Company Number: None

PATIENT
  Age: 68 Year
  Sex: Female

DRUGS (10)
  1. CYMBALTA 30MG. DELAYED RELEASE CAPSULE LILLY [Suspect]
     Indication: DEPRESSION
     Dosage: STRENGTH:  30 MG.?QUANTITY:  4 BOTTLES OF 7IN EACH = 28 PILLS?FREQUENCY:  ONE TIME DAILY?HOW:  BY MOUTH?
     Route: 048
     Dates: start: 20130826, end: 20130830
  2. CYMBALTA 30MG. DELAYED RELEASE CAPSULE LILLY [Suspect]
     Indication: ANXIETY
     Dosage: STRENGTH:  30 MG.?QUANTITY:  4 BOTTLES OF 7IN EACH = 28 PILLS?FREQUENCY:  ONE TIME DAILY?HOW:  BY MOUTH?
     Route: 048
     Dates: start: 20130826, end: 20130830
  3. CYMBALTA 30MG. DELAYED RELEASE CAPSULE LILLY [Suspect]
     Indication: PAIN
     Dosage: STRENGTH:  30 MG.?QUANTITY:  4 BOTTLES OF 7IN EACH = 28 PILLS?FREQUENCY:  ONE TIME DAILY?HOW:  BY MOUTH?
     Route: 048
     Dates: start: 20130826, end: 20130830
  4. BECLOFEN [Concomitant]
  5. CRESTOR [Concomitant]
  6. PROGESTERONE [Concomitant]
  7. AMBIEN [Concomitant]
  8. KLONOPIN [Concomitant]
  9. CALCIUM WITH VITAMIN D [Concomitant]
  10. MULTIVITAMIN [Concomitant]

REACTIONS (6)
  - Abdominal pain upper [None]
  - Malaise [None]
  - Nausea [None]
  - Insomnia [None]
  - Hyperhidrosis [None]
  - Decreased appetite [None]
